FAERS Safety Report 11970142 (Version 1)
Quarter: 2016Q1

REPORT INFORMATION
  Report Type: Spontaneous
  Country: US (occurrence: None)
  Receive Date: 20160127
  Receipt Date: 20160127
  Transmission Date: 20160526
  Serious: Yes (Hospitalization)
  Sender: FDA-Public Use
  Company Number: None

PATIENT
  Age: 59 Year
  Sex: Male
  Weight: 81.8 kg

DRUGS (3)
  1. RITONAVIR. [Suspect]
     Active Substance: RITONAVIR
     Indication: HIV INFECTION
     Route: 048
     Dates: start: 20040513
  2. DULOXETINE. [Suspect]
     Active Substance: DULOXETINE
     Indication: POST-TRAUMATIC STRESS DISORDER
     Route: 048
     Dates: start: 20151029, end: 20151130
  3. DULOXETINE. [Suspect]
     Active Substance: DULOXETINE
     Indication: DEPRESSION
     Route: 048
     Dates: start: 20151029, end: 20151130

REACTIONS (12)
  - Hypertension [None]
  - Vision blurred [None]
  - Micturition urgency [None]
  - Tremor [None]
  - Headache [None]
  - Arthralgia [None]
  - Diarrhoea [None]
  - Nausea [None]
  - Syncope [None]
  - Tachypnoea [None]
  - Vomiting [None]
  - Palpitations [None]

NARRATIVE: CASE EVENT DATE: 20151130
